FAERS Safety Report 20417196 (Version 3)
Quarter: 2022Q1

REPORT INFORMATION
  Report Type: Spontaneous
  Country: GB (occurrence: GB)
  Receive Date: 20220202
  Receipt Date: 20220302
  Transmission Date: 20220424
  Serious: Yes (Life-Threatening, Hospitalization, Other)
  Sender: FDA-Public Use
  Company Number: None

PATIENT
  Sex: Male
  Weight: 3.1 kg

DRUGS (14)
  1. ZOFRAN [Suspect]
     Active Substance: ONDANSETRON HYDROCHLORIDE
     Indication: Vomiting
     Route: 064
  2. ZOFRAN [Suspect]
     Active Substance: ONDANSETRON HYDROCHLORIDE
     Route: 064
  3. ZOFRAN [Suspect]
     Active Substance: ONDANSETRON HYDROCHLORIDE
     Route: 064
  4. ZOFRAN [Suspect]
     Active Substance: ONDANSETRON HYDROCHLORIDE
     Route: 064
  5. ZOFRAN [Suspect]
     Active Substance: ONDANSETRON HYDROCHLORIDE
     Route: 064
  6. OMEPRAZOLE [Suspect]
     Active Substance: OMEPRAZOLE
     Indication: Vomiting
     Route: 064
     Dates: start: 200701
  7. PROCHLORPERAZINE [Suspect]
     Active Substance: PROCHLORPERAZINE
     Route: 064
  8. METOCLOPRAMIDE [Suspect]
     Active Substance: METOCLOPRAMIDE
     Indication: Vomiting
     Dosage: 10 MILLIGRAM, QD
     Route: 064
     Dates: start: 20061208, end: 20061218
  9. CYCLIZINE [Suspect]
     Active Substance: CYCLIZINE
     Indication: Vomiting
     Route: 064
  10. FERROUS FUMARATE [Concomitant]
     Active Substance: FERROUS FUMARATE
     Indication: Anaemia
     Route: 064
     Dates: start: 20061208
  11. FERROUS FUMARATE [Concomitant]
     Active Substance: FERROUS FUMARATE
     Dates: end: 20061218
  12. ONDANSETRON [Suspect]
     Active Substance: ONDANSETRON
  13. VITAMIN K [Suspect]
     Active Substance: PHYTONADIONE
     Indication: Anaemia
  14. IRON [Concomitant]
     Active Substance: IRON
     Indication: Anaemia
     Route: 064
     Dates: start: 20061208

REACTIONS (5)
  - Necrotising enterocolitis neonatal [Unknown]
  - Meconium abnormal [Unknown]
  - Abdominal distension [Unknown]
  - Laparotomy [Unknown]
  - Foetal exposure during pregnancy [Unknown]
